FAERS Safety Report 13054092 (Version 1)
Quarter: 2016Q4

REPORT INFORMATION
  Report Type: Spontaneous
  Country: US (occurrence: US)
  Receive Date: 20161222
  Receipt Date: 20161222
  Transmission Date: 20170207
  Serious: Yes (Other)
  Sender: FDA-Public Use
  Company Number: US-ELI_LILLY_AND_COMPANY-US201607007587

PATIENT
  Sex: Male
  Weight: 129 kg

DRUGS (3)
  1. CYMBALTA [Suspect]
     Active Substance: DULOXETINE HYDROCHLORIDE
     Dosage: 30 MG, QOD
     Dates: start: 2014
  2. CYMBALTA [Suspect]
     Active Substance: DULOXETINE HYDROCHLORIDE
     Indication: PAIN
     Dosage: UNK, UNKNOWN
     Route: 065
     Dates: start: 20140210
  3. CYMBALTA [Suspect]
     Active Substance: DULOXETINE HYDROCHLORIDE
     Indication: ANXIETY
     Dosage: 30 MG, QD FOR 2-4 WEEKS
     Route: 065
     Dates: start: 20140619

REACTIONS (12)
  - Dizziness [Unknown]
  - Fatigue [Unknown]
  - Sensory disturbance [Unknown]
  - Vertigo [Unknown]
  - Paraesthesia [Unknown]
  - Suicidal ideation [Unknown]
  - Nausea [Unknown]
  - Drug withdrawal syndrome [Unknown]
  - Headache [Unknown]
  - Tremor [Unknown]
  - Irritability [Unknown]
  - Insomnia [Unknown]
